FAERS Safety Report 6842637-6 (Version None)
Quarter: 2010Q3

REPORT INFORMATION
  Report Type: 
  Country: None (occurrence: None)
  Receive Date: 20100714
  Receipt Date: 20070801
  Transmission Date: 20110219
  Serious: No
  Sender: FDA-Public Use
  Company Number: US-PFIZER INC-2007065703

PATIENT
  Sex: Female

DRUGS (5)
  1. CHANTIX [Suspect]
     Indication: SMOKING CESSATION THERAPY
     Dates: start: 20070720
  2. ROBAXIN [Concomitant]
  3. GABAPENTIN [Concomitant]
  4. IMIPRAMINE [Concomitant]
  5. ANALGESICS [Concomitant]
     Indication: PAIN

REACTIONS (3)
  - HEADACHE [None]
  - NAUSEA [None]
  - WEIGHT INCREASED [None]
